FAERS Safety Report 5906997-2 (Version None)
Quarter: 2008Q4

REPORT INFORMATION
  Report Type: 
  Country: None (occurrence: None)
  Receive Date: 20081002
  Receipt Date: 20081002
  Transmission Date: 20090506
  Serious: No
  Sender: FDA-Public Use
  Company Number: None

PATIENT
  Age: 49 Year
  Sex: Female
  Weight: 63.05 kg

DRUGS (1)
  1. CICLOPIROX [Suspect]
     Indication: TINEA PEDIS
     Dosage: TOPICAL APPLICATION TWICE DAILY TOP
     Route: 061
     Dates: start: 20080923, end: 20080927

REACTIONS (4)
  - ACNE [None]
  - ALOPECIA [None]
  - DERMAL CYST [None]
  - PAIN [None]
